FAERS Safety Report 18606206 (Version 4)
Quarter: 2021Q1

REPORT INFORMATION
  Report Type: Report from Study
  Country: US (occurrence: US)
  Receive Date: 20201211
  Receipt Date: 20210315
  Transmission Date: 20210419
  Serious: No
  Sender: FDA-Public Use
  Company Number: NVSC2020US323763

PATIENT
  Age: 55 Year
  Sex: Male

DRUGS (5)
  1. METOPROLOL. [Concomitant]
     Active Substance: METOPROLOL
     Indication: PRODUCT USED FOR UNKNOWN INDICATION
     Dosage: UNK
     Route: 065
  2. ENTRESTO [Suspect]
     Active Substance: SACUBITRIL\VALSARTAN
     Indication: PRODUCT USED FOR UNKNOWN INDICATION
     Dosage: 1 DF (24/26 MG), QD
     Route: 048
     Dates: start: 202011
  3. LIPITOR [Concomitant]
     Active Substance: ATORVASTATIN CALCIUM
     Indication: PRODUCT USED FOR UNKNOWN INDICATION
     Dosage: UNK
     Route: 065
  4. ASA [Concomitant]
     Active Substance: ASPIRIN
     Indication: PRODUCT USED FOR UNKNOWN INDICATION
     Route: 065
  5. DIURETIC [Concomitant]
     Active Substance: UNSPECIFIED INGREDIENT
     Indication: PRODUCT USED FOR UNKNOWN INDICATION
     Dosage: UNK
     Route: 065

REACTIONS (22)
  - Asthenia [Unknown]
  - Tooth infection [Unknown]
  - Stress [Unknown]
  - Memory impairment [Unknown]
  - Decreased activity [Unknown]
  - Ageusia [Unknown]
  - Somnolence [Unknown]
  - Weight decreased [Unknown]
  - Tooth loss [Unknown]
  - General physical condition normal [Recovered/Resolved]
  - Thinking abnormal [Unknown]
  - Fatigue [Unknown]
  - Hair colour changes [Unknown]
  - Dyspnoea [Recovering/Resolving]
  - Throat clearing [Unknown]
  - Sexual dysfunction [Recovering/Resolving]
  - Product dose omission issue [Unknown]
  - Concomitant disease progression [Unknown]
  - Dizziness [Unknown]
  - Depression [Unknown]
  - Depressed mood [Unknown]
  - Hypotension [Unknown]

NARRATIVE: CASE EVENT DATE: 20201216
